FAERS Safety Report 25642515 (Version 1)
Quarter: 2025Q3

REPORT INFORMATION
  Report Type: Spontaneous
  Country: GB (occurrence: GB)
  Receive Date: 20250805
  Receipt Date: 20250805
  Transmission Date: 20251021
  Serious: Yes (Disabling, Other)
  Sender: ALEXION PHARMACEUTICALS
  Company Number: None

PATIENT
  Age: 80 Year
  Sex: Male
  Weight: 73 kg

DRUGS (9)
  1. DAPAGLIFLOZIN [Suspect]
     Active Substance: DAPAGLIFLOZIN
     Indication: Type 2 diabetes mellitus
     Dosage: 10MG ONCE A DAY AT NIGHT
     Route: 065
     Dates: start: 20240629, end: 20241002
  2. EMPAGLIFLOZIN [Suspect]
     Active Substance: EMPAGLIFLOZIN
     Dosage: ONE 25MG PER DAY
     Route: 065
     Dates: start: 20240925, end: 20241002
  3. ATORVASTATIN [Concomitant]
     Active Substance: ATORVASTATIN
     Route: 065
  4. BISOPROLOL [Concomitant]
     Active Substance: BISOPROLOL
     Route: 065
  5. DOXAZOSIN [Concomitant]
     Active Substance: DOXAZOSIN MESYLATE
     Route: 065
  6. EDOXABAN [Concomitant]
     Active Substance: EDOXABAN
     Route: 065
  7. EPLERENONE [Concomitant]
     Active Substance: EPLERENONE
     Route: 065
  8. INSULIN HUMAN [Concomitant]
     Active Substance: INSULIN HUMAN
     Indication: Type 2 diabetes mellitus
     Route: 065
  9. PERINDOPRIL [Concomitant]
     Active Substance: PERINDOPRIL
     Indication: Adverse drug reaction
     Route: 065

REACTIONS (7)
  - Myalgia [Recovering/Resolving]
  - Muscle atrophy [Recovering/Resolving]
  - Muscle oedema [Recovering/Resolving]
  - Asthenia [Recovering/Resolving]
  - Malnutrition [Recovered/Resolved]
  - Insomnia [Recovering/Resolving]
  - Urine output increased [Unknown]

NARRATIVE: CASE EVENT DATE: 20240710
